FAERS Safety Report 7930722 (Version 11)
Quarter: 2014Q2

REPORT INFORMATION
  Report Type: Report from Study
  Country: BR (occurrence: BR)
  Receive Date: 20110504
  Receipt Date: 20140430
  Transmission Date: 20141212
  Serious: Yes (Hospitalization, Other)
  Sender: FDA-Public Use
  Company Number: BR-ROCHE-768315

PATIENT
  Age: 78 Year
  Sex: Female
  Weight: 64 kg

DRUGS (11)
  1. ACTEMRA [Suspect]
     Indication: RHEUMATOID ARTHRITIS
     Route: 042
     Dates: start: 20100325, end: 20120313
  2. ACTEMRA [Suspect]
     Dosage: MOST RECENT DOSE WAS ON 03/JUL/2013
     Route: 042
  3. CARVEDILOL [Concomitant]
     Route: 065
  4. CLOPIDOGREL BISULFATE [Concomitant]
     Route: 065
  5. FUROSEMIDE [Concomitant]
     Route: 065
  6. OMEPRAZOLE [Concomitant]
  7. PREDNISONE [Concomitant]
  8. METHOTREXATE [Concomitant]
     Route: 065
  9. NAPROXEN [Concomitant]
  10. ASCORBIC ACID [Concomitant]
     Route: 065
  11. PREDNISONE [Concomitant]

REACTIONS (17)
  - Urinary tract infection [Unknown]
  - Depression [Recovering/Resolving]
  - Weight decreased [Unknown]
  - Cardiomegaly [Unknown]
  - Peripheral swelling [Unknown]
  - Pain in extremity [Unknown]
  - Cardiac disorder [Unknown]
  - Pelvic pain [Not Recovered/Not Resolved]
  - Fatigue [Not Recovered/Not Resolved]
  - Rib fracture [Unknown]
  - Fall [Unknown]
  - Disease progression [Recovering/Resolving]
  - Infection [Unknown]
  - Dyspnoea [Recovered/Resolved]
  - Pain [Unknown]
  - Dysuria [Recovered/Resolved]
  - Gait disturbance [Unknown]
